FAERS Safety Report 7533128-8 (Version None)
Quarter: 2011Q2

REPORT INFORMATION
  Report Type: 
  Country: None (occurrence: None)
  Receive Date: 20110608
  Receipt Date: 20020314
  Transmission Date: 20111010
  Serious: Yes (Death, Life-Threatening)
  Sender: FDA-Public Use
  Company Number: PHBS2002CA00605

PATIENT
  Sex: Female

DRUGS (4)
  1. PROVERA [Concomitant]
  2. CLOZAPINE [Suspect]
     Indication: SCHIZOPHRENIA
     Dosage: 250 MG, QHS
     Route: 048
     Dates: start: 19940620
  3. DETROL [Concomitant]
  4. PREMARIN [Concomitant]

REACTIONS (4)
  - BRONCHIAL CARCINOMA [None]
  - LUNG NEOPLASM MALIGNANT [None]
  - METASTASES TO THE MEDIASTINUM [None]
  - METASTASES TO CENTRAL NERVOUS SYSTEM [None]
